FAERS Safety Report 5281269-0 (Version None)
Quarter: 2007Q1

REPORT INFORMATION
  Report Type: 
  Country: None (occurrence: None)
  Receive Date: 20061218
  Receipt Date: 20060217
  Transmission Date: 20070707
  Serious: Yes (Life-Threatening)
  Sender: FDA-Public Use
  Company Number: US200602003962

PATIENT
  Sex: Female

DRUGS (4)
  1. HUMULIN R [Suspect]
     Indication: DIABETES MELLITUS
  2. HUMALOG [Suspect]
     Indication: DIABETES MELLITUS
  3. INSULIN [Suspect]
  4. NOVOLIN N [Concomitant]

REACTIONS (2)
  - BLOOD GLUCOSE DECREASED [None]
  - HERPES ZOSTER [None]
